FAERS Safety Report 5403193-2 (Version None)
Quarter: 2007Q3

REPORT INFORMATION
  Report Type: 
  Country: None (occurrence: None)
  Receive Date: 20070713
  Receipt Date: 20070328
  Transmission Date: 20080115
  Serious: Yes (Hospitalization)
  Sender: FDA-Public Use
  Company Number: US-JNJFOC-20061200580

PATIENT
  Age: 38 Year
  Sex: Female
  Weight: 68.4932 kg

DRUGS (4)
  1. ORTHO EVRA [Suspect]
     Indication: CONTRACEPTION
     Dosage: TRANSDERMAL
     Route: 062
     Dates: start: 20021001, end: 20030116
  2. ALEVE [Concomitant]
  3. IBUPROFEN TABLETS [Concomitant]
  4. VICODIN [Concomitant]

REACTIONS (3)
  - HEADACHE [None]
  - NAUSEA [None]
  - PELVIC VENOUS THROMBOSIS [None]
